FAERS Safety Report 5637952-8 (Version None)
Quarter: 2008Q1

REPORT INFORMATION
  Report Type: 
  Country: None (occurrence: None)
  Receive Date: 20080222
  Receipt Date: 20080222
  Transmission Date: 20080703
  Serious: Yes (Hospitalization)
  Sender: FDA-Public Use
  Company Number: None

PATIENT
  Sex: Female
  Weight: 104 kg

DRUGS (4)
  1. FLUOROURACIL [Suspect]
     Dosage: 23884 MG
     Dates: end: 20080206
  2. BEVACIZUMAB (RHUMAB VEGF) [Suspect]
     Dosage: 2997 MG
     Dates: end: 20080206
  3. CAMPTOSAR [Suspect]
     Dosage: 1531 MG
     Dates: end: 20080206
  4. LEUCOVORIN CALCIUM [Suspect]
     Dosage: 3408 MG
     Dates: end: 20080206

REACTIONS (5)
  - BLOOD PRESSURE SYSTOLIC DECREASED [None]
  - HEART RATE INCREASED [None]
  - INFLUENZA [None]
  - RESPIRATORY TRACT IRRITATION [None]
  - THROAT IRRITATION [None]
